FAERS Safety Report 11499387 (Version 1)
Quarter: 2015Q3

REPORT INFORMATION
  Report Type: Report from Study
  Country: US (occurrence: US)
  Receive Date: 20150914
  Receipt Date: 20150914
  Transmission Date: 20151125
  Serious: Yes (Other)
  Sender: FDA-Public Use
  Company Number: US-AMGEN-USASP2015093129

PATIENT
  Age: 46 Year
  Sex: Female

DRUGS (1)
  1. ENBREL [Suspect]
     Active Substance: ETANERCEPT
     Indication: RHEUMATOID ARTHRITIS
     Dosage: UNK UNK, UNK
     Route: 065
     Dates: start: 20150803

REACTIONS (7)
  - Injection site pain [Unknown]
  - Bronchitis [Unknown]
  - Sinus disorder [Unknown]
  - Lower respiratory tract infection [Unknown]
  - Bronchospasm [Unknown]
  - Pain [Unknown]
  - Headache [Unknown]
